FAERS Safety Report 25280423 (Version 2)
Quarter: 2025Q2

REPORT INFORMATION
  Report Type: Report from Study
  Country: US (occurrence: US)
  Receive Date: 20250508
  Receipt Date: 20250513
  Transmission Date: 20250717
  Serious: Yes (Hospitalization, Other)
  Sender: ABBVIE
  Company Number: US-ABBVIE-6265719

PATIENT
  Age: 65 Year
  Sex: Male
  Weight: 102.05 kg

DRUGS (2)
  1. SKYRIZI [Suspect]
     Active Substance: RISANKIZUMAB-RZAA
     Indication: Psoriatic arthropathy
     Route: 058
     Dates: start: 20240624
  2. SKYRIZI [Suspect]
     Active Substance: RISANKIZUMAB-RZAA
     Indication: Psoriasis

REACTIONS (12)
  - Fall [Recovering/Resolving]
  - Rib fracture [Recovering/Resolving]
  - Spinal fracture [Recovering/Resolving]
  - Ligament rupture [Recovering/Resolving]
  - Pneumonia staphylococcal [Recovering/Resolving]
  - Pneumonia [Recovering/Resolving]
  - Dyspnoea [Recovering/Resolving]
  - Empyema [Recovering/Resolving]
  - Rash [Unknown]
  - Mobility decreased [Unknown]
  - Thrombosis [Recovering/Resolving]
  - Head injury [Recovering/Resolving]

NARRATIVE: CASE EVENT DATE: 20250101
